FAERS Safety Report 8375531-2 (Version None)
Quarter: 2012Q1

REPORT INFORMATION
  Report Type: 
  Country: None (occurrence: None)
  Receive Date: 20120323
  Receipt Date: 20110321
  Transmission Date: 20120608
  Serious: Yes (Other)
  Sender: FDA-Public Use
  Company Number: 163-21880-11012853

PATIENT
  Age: 70 Year
  Sex: Male
  Weight: 74.8 kg

DRUGS (1)
  1. REVLIMID [Suspect]
     Indication: MULTIPLE MYELOMA
     Dosage: 5 MG, DAILY, PO, 5 MG, 2 WEEKS ON/2 WEEKS OFF, PO
     Route: 048
     Dates: start: 20101222

REACTIONS (3)
  - DRY MOUTH [None]
  - AGEUSIA [None]
  - PANCYTOPENIA [None]
